FAERS Safety Report 5702710-2 (Version None)
Quarter: 2008Q2

REPORT INFORMATION
  Report Type: 
  Country: None (occurrence: None)
  Receive Date: 20080411
  Receipt Date: 20080404
  Transmission Date: 20081010
  Serious: Yes (Hospitalization)
  Sender: FDA-Public Use
  Company Number: A0719407A

PATIENT
  Age: 51 Year
  Sex: Female

DRUGS (11)
  1. ARIXTRA [Suspect]
     Dosage: 5MG PER DAY
     Route: 058
     Dates: start: 20061201
  2. REQUIP [Suspect]
     Indication: RESTLESS LEGS SYNDROME
     Dosage: 1MG PER DAY
     Route: 048
     Dates: start: 20060401, end: 20060401
  3. WARFARIN SODIUM [Suspect]
     Dosage: 5MG PER DAY
     Route: 048
     Dates: end: 20060101
  4. HUMULIN N [Concomitant]
  5. XANAX [Concomitant]
  6. MORPHINE SULFATE [Concomitant]
  7. ROXICODONE [Concomitant]
  8. METHADONE HCL [Concomitant]
  9. SKELAXIN [Concomitant]
  10. FLONASE [Concomitant]
  11. CLARITIN [Concomitant]

REACTIONS (11)
  - CONTUSION [None]
  - CONVULSION [None]
  - DYSKINESIA [None]
  - GASTRIC DISORDER [None]
  - GRAND MAL CONVULSION [None]
  - INJECTION SITE PAIN [None]
  - INTERNATIONAL NORMALISED RATIO INCREASED [None]
  - PAIN [None]
  - PETECHIAE [None]
  - RESTLESS LEGS SYNDROME [None]
  - SKIN DISCOLOURATION [None]
